FAERS Safety Report 8965534 (Version 2)
Quarter: 2013Q1

REPORT INFORMATION
  Report Type: Spontaneous
  Country: FR (occurrence: None)
  Receive Date: 20121205
  Receipt Date: 20121220
  Transmission Date: 20140127
  Serious: Yes (Hospitalization)
  Sender: FDA-Public Use
  Company Number: 2012110109

PATIENT
  Age: 47 Year
  Sex: Female

DRUGS (3)
  1. ALLERGODIL [Suspect]
     Dates: start: 20120403, end: 2012
  2. EPITOMAX [Suspect]
     Indication: NEURALGIA
     Route: 048
     Dates: start: 201111, end: 2012
  3. AERIUS [Suspect]
     Indication: HYPERSENSITIVITY
     Route: 048
     Dates: start: 20120403, end: 2012

REACTIONS (1)
  - Nephrolithiasis [None]
